FAERS Safety Report 10689864 (Version 1)
Quarter: 2015Q1

REPORT INFORMATION
  Report Type: Spontaneous
  Country: US (occurrence: US)
  Receive Date: 20150105
  Receipt Date: 20150105
  Transmission Date: 20150720
  Serious: No
  Sender: FDA-Public Use
  Company Number: US-ELI_LILLY_AND_COMPANY-US201412005178

PATIENT
  Sex: Female

DRUGS (3)
  1. INSULIN HUMAN [Suspect]
     Active Substance: INSULIN HUMAN
     Indication: TYPE 2 DIABETES MELLITUS
     Dosage: UNK UNK, PRN
     Route: 065
     Dates: start: 2012
  2. HUMALOG [Suspect]
     Active Substance: INSULIN LISPRO
     Indication: TYPE 2 DIABETES MELLITUS
     Dosage: UNK, PRN
     Route: 065
     Dates: start: 201403
  3. LEVEMIR [Concomitant]
     Active Substance: INSULIN DETEMIR

REACTIONS (2)
  - Medication error [Unknown]
  - Blood glucose increased [Not Recovered/Not Resolved]

NARRATIVE: CASE EVENT DATE: 20141120
